FAERS Safety Report 4432011-4 (Version None)
Quarter: 2004Q3

REPORT INFORMATION
  Report Type: 
  Country: None (occurrence: None)
  Receive Date: 20040819
  Receipt Date: 20040804
  Transmission Date: 20050211
  Serious: No
  Sender: FDA-Public Use
  Company Number: 04P-056-0269396-00

PATIENT
  Age: 5 Year
  Sex: Male

DRUGS (1)
  1. DEPAKINE GRANUEL (DEPAKENE) (SODIUM VALPROATE/VALPROIC ACID) (SODIUM V [Suspect]
     Indication: CONVULSION
     Dosage: 750 MG, 1 IN 1 D, PER ORAL
     Route: 048
     Dates: start: 20040612, end: 20030713

REACTIONS (6)
  - AMMONIA INCREASED [None]
  - BLOOD AMYLASE INCREASED [None]
  - CONVULSION [None]
  - DRUG INEFFECTIVE [None]
  - LIPASE INCREASED [None]
  - WEIGHT INCREASED [None]
